FAERS Safety Report 5559904-9 (Version None)
Quarter: 2007Q4

REPORT INFORMATION
  Report Type: 
  Country: None (occurrence: None)
  Receive Date: 20071214
  Receipt Date: 20071031
  Transmission Date: 20080405
  Serious: No
  Sender: FDA-Public Use
  Company Number: US-ABBOTT-07P-163-0421689-00

PATIENT
  Sex: Female
  Weight: 71.732 kg

DRUGS (7)
  1. HUMIRA [Interacting]
     Indication: RHEUMATOID ARTHRITIS
     Route: 058
     Dates: start: 20070101, end: 20070901
  2. MOXIFLOXACIN HYDROCHLORIDE [Suspect]
     Indication: CHEST PAIN
     Dates: start: 20071018, end: 20071023
  3. LORATADINE [Concomitant]
     Indication: HYPERSENSITIVITY
  4. NAPROXEN [Concomitant]
     Indication: PAIN
     Route: 048
  5. ACETAMINOPHEN [Concomitant]
     Indication: PAIN
  6. CARBANACEPINE [Concomitant]
     Indication: CONVULSION
     Route: 048
  7. AMLODIPINE [Concomitant]
     Indication: BLOOD PRESSURE

REACTIONS (14)
  - ANOREXIA [None]
  - ASTHENIA [None]
  - CHEST PAIN [None]
  - COUGH [None]
  - DIZZINESS [None]
  - DRUG INTERACTION [None]
  - DYSPHASIA [None]
  - DYSPNOEA [None]
  - EYE PAIN [None]
  - INFLUENZA LIKE ILLNESS [None]
  - MALAISE [None]
  - NASOPHARYNGITIS [None]
  - NAUSEA [None]
  - PAIN [None]
